FAERS Safety Report 4496558-7 (Version None)
Quarter: 2004Q4

REPORT INFORMATION
  Report Type: 
  Country: None (occurrence: None)
  Receive Date: 20041103
  Receipt Date: 20041017
  Transmission Date: 20050328
  Serious: Yes (Death)
  Sender: FDA-Public Use
  Company Number: AE-003-04

PATIENT
  Sex: Male
  Weight: 4 kg

DRUGS (5)
  1. BABYBIG(R) [BOTULISM IMMUNE GLOBULIN INTRAVENOUS(HUMAN)] [Suspect]
     Indication: BOTULISM
     Dosage: 200 MG ONCE IV
     Route: 042
     Dates: start: 20041005
  2. AMPICILLIN [Concomitant]
  3. CEFOTAXIME [Concomitant]
  4. GENTAMYCIN SULFATE [Concomitant]
  5. ACYCLOVIR [Concomitant]

REACTIONS (9)
  - ASCITES [None]
  - CLOSTRIDIUM COLITIS [None]
  - COMA [None]
  - DISSEMINATED INTRAVASCULAR COAGULATION [None]
  - INTESTINAL ISCHAEMIA [None]
  - INTESTINAL PERFORATION [None]
  - PERITONITIS [None]
  - SEPSIS [None]
  - SEPTIC SHOCK [None]
